FAERS Safety Report 4345740-8 (Version None)
Quarter: 2004Q2

REPORT INFORMATION
  Report Type: 
  Country: None (occurrence: None)
  Receive Date: 20040421
  Receipt Date: 20040413
  Transmission Date: 20050107
  Serious: Yes (Hospitalization)
  Sender: FDA-Public Use
  Company Number: GB-JNJFOC-20040402487

PATIENT
  Age: 63 Year
  Sex: Male

DRUGS (4)
  1. REMICADE [Suspect]
     Indication: RHEUMATOID ARTHRITIS
     Dosage: INTRAVENOUS
     Route: 042
     Dates: start: 20020226
  2. METHOTREXATE [Concomitant]
  3. CO-PROXAMOL (APOREX) [Concomitant]
  4. PREDNISOLONE [Concomitant]

REACTIONS (2)
  - COLLAPSE OF LUNG [None]
  - PLEURAL EFFUSION [None]
